FAERS Safety Report 11347749 (Version 1)
Quarter: 2015Q3

REPORT INFORMATION
  Report Type: Spontaneous
  Country: US (occurrence: US)
  Receive Date: 20150803
  Receipt Date: 20150803
  Transmission Date: 20151125
  Serious: No
  Sender: FDA-Public Use
  Company Number: US-ELI_LILLY_AND_COMPANY-US201109008030

PATIENT
  Age: 20 Year
  Sex: Male

DRUGS (2)
  1. INVEGA [Concomitant]
     Active Substance: PALIPERIDONE
  2. ZYPREXA [Suspect]
     Active Substance: OLANZAPINE
     Indication: SCHIZOPHRENIA
     Dosage: 5 MG, UNK
     Dates: start: 201109

REACTIONS (4)
  - Pruritus [Unknown]
  - Syphilis [Unknown]
  - Skin disorder [Unknown]
  - Skin discolouration [Unknown]
